FAERS Safety Report 20468396 (Version 1)
Quarter: 2022Q1

REPORT INFORMATION
  Report Type: Spontaneous
  Country: US (occurrence: None)
  Receive Date: 20220211
  Receipt Date: 20220211
  Transmission Date: 20220423
  Serious: Yes (Other)
  Sender: FDA-Public Use
  Company Number: None

PATIENT
  Age: 77 Year
  Sex: Male
  Weight: 124.2 kg

DRUGS (6)
  1. DULAGLUTIDE [Suspect]
     Active Substance: DULAGLUTIDE
     Indication: Type 2 diabetes mellitus
     Dosage: FREQUENCY : WEEKLY;?
     Route: 058
     Dates: start: 20210616, end: 20211021
  2. Toujeo U-300 insulin [Concomitant]
     Dates: start: 20210615
  3. Humalog U-200 insulin [Concomitant]
     Dates: start: 20210615
  4. Metformin 1000 mg daily [Concomitant]
     Dates: start: 20100101
  5. Glimepiride 8 mg daily [Concomitant]
     Dates: start: 20100101
  6. SEMAGLUTIDE [Suspect]
     Active Substance: SEMAGLUTIDE

REACTIONS (3)
  - Acute kidney injury [None]
  - Rash pruritic [None]
  - Nonspecific reaction [None]

NARRATIVE: CASE EVENT DATE: 20211008
